FAERS Safety Report 15849877 (Version 1)
Quarter: 2019Q1

REPORT INFORMATION
  Report Type: Spontaneous
  Country: HR (occurrence: HR)
  Receive Date: 20190121
  Receipt Date: 20190121
  Transmission Date: 20190417
  Serious: Yes (Hospitalization)
  Sender: FDA-Public Use
  Company Number: HR-PFM-2019-00458

PATIENT

DRUGS (13)
  1. PROPRANOLOL [Suspect]
     Active Substance: PROPRANOLOL HYDROCHLORIDE
     Indication: MIGRAINE PROPHYLAXIS
     Dosage: 180 MG, UNK
     Route: 065
  2. HELEX [Suspect]
     Active Substance: ALPRAZOLAM
     Indication: MIGRAINE PROPHYLAXIS
     Dosage: UNK
     Route: 065
  3. KNAVON [Suspect]
     Active Substance: KETOPROFEN
     Indication: MIGRAINE
     Route: 065
  4. PROPRANOLOL [Suspect]
     Active Substance: PROPRANOLOL HYDROCHLORIDE
     Indication: PRODUCT USED FOR UNKNOWN INDICATION
     Dosage: 120 MG, UNK
     Route: 065
  5. KETONAL [Suspect]
     Active Substance: KETOPROFEN
     Indication: MIGRAINE
     Dosage: UNK
     Route: 065
  6. ELICEA [Suspect]
     Active Substance: ESCITALOPRAM OXALATE
     Indication: MIGRAINE
     Dosage: UNK
     Route: 065
  7. PLIVADON (CAFFEINE/PHENACETIN/PROPYPHENAZONE) [Suspect]
     Active Substance: CAFFEINE\PHENACETIN\PROPYPHENAZONE
     Indication: MIGRAINE
     Route: 065
  8. NORMABEL [Suspect]
     Active Substance: DIAZEPAM
     Indication: MIGRAINE
     Dosage: UNK
     Route: 065
  9. CIPRALEX [Suspect]
     Active Substance: ESCITALOPRAM OXALATE
     Indication: MIGRAINE PROPHYLAXIS
     Route: 065
  10. BOTOX [Suspect]
     Active Substance: ONABOTULINUMTOXINA
     Indication: MIGRAINE
     Dosage: UNK
     Route: 065
  11. AMYZOL [Suspect]
     Active Substance: AMITRIPTYLINE
     Indication: MIGRAINE PROPHYLAXIS
     Dosage: UNK
     Route: 065
  12. TOPIRAMATE. [Suspect]
     Active Substance: TOPIRAMATE
     Indication: MIGRAINE
     Dosage: UNK
     Route: 065
  13. IMIGRAN [Suspect]
     Active Substance: SUMATRIPTAN SUCCINATE
     Indication: MIGRAINE
     Dosage: UNK
     Route: 065

REACTIONS (5)
  - Product use issue [Unknown]
  - Drug ineffective [Unknown]
  - Product use in unapproved indication [Unknown]
  - Off label use [Unknown]
  - Drug intolerance [Unknown]
